FAERS Safety Report 17401959 (Version 1)
Quarter: 2020Q1

REPORT INFORMATION
  Report Type: Spontaneous
  Country: US (occurrence: US)
  Receive Date: 20200211
  Receipt Date: 20200211
  Transmission Date: 20200409
  Serious: Yes (Hospitalization, Other)
  Sender: FDA-Public Use
  Company Number: US-SUNOVION-2020SUN000447

PATIENT
  Age: 81 Year
  Sex: Female
  Weight: 58.96 kg

DRUGS (1)
  1. BROVANA [Suspect]
     Active Substance: ARFORMOTEROL TARTRATE
     Indication: CHRONIC OBSTRUCTIVE PULMONARY DISEASE
     Dosage: 15 ?G/2ML
     Route: 055

REACTIONS (2)
  - Urinary tract infection [Unknown]
  - Pneumonia [Unknown]
